FAERS Safety Report 6238817-3 (Version None)
Quarter: 2009Q2

REPORT INFORMATION
  Report Type: 
  Country: None (occurrence: None)
  Receive Date: 20090617
  Receipt Date: 20090617
  Transmission Date: 20091009
  Serious: Yes (Other)
  Sender: FDA-Public Use
  Company Number: None

PATIENT
  Sex: Female
  Weight: 54.4316 kg

DRUGS (2)
  1. ZICAM NO STRENGTH MATRIXX [Suspect]
     Indication: NASAL CONGESTION
     Dosage: ONE SQUIRT IN EACH ONCE NASAL
     Route: 045
     Dates: start: 20090614, end: 20090614
  2. ZICAM NO STRENGTH MATRIXX [Suspect]
     Indication: NASOPHARYNGITIS
     Dosage: ONE SQUIRT IN EACH ONCE NASAL
     Route: 045
     Dates: start: 20090614, end: 20090614

REACTIONS (9)
  - BURNING SENSATION [None]
  - CONDITION AGGRAVATED [None]
  - CRYING [None]
  - FEAR [None]
  - HEADACHE [None]
  - HYPOSMIA [None]
  - MIGRAINE [None]
  - NASAL CONGESTION [None]
  - NASAL DISCOMFORT [None]
